FAERS Safety Report 11164645 (Version 1)
Quarter: 2015Q2

REPORT INFORMATION
  Report Type: Spontaneous
  Country: US (occurrence: None)
  Receive Date: 20150603
  Receipt Date: 20150603
  Transmission Date: 20150821
  Serious: Yes (Death)
  Sender: FDA-Public Use
  Company Number: None

PATIENT
  Age: 64 Year
  Sex: Male

DRUGS (1)
  1. REVLIMID [Suspect]
     Active Substance: LENALIDOMIDE
     Indication: PLASMA CELL MYELOMA
     Route: 048
     Dates: start: 20150501

REACTIONS (6)
  - Hypoaesthesia [None]
  - Dyspnoea [None]
  - Unresponsive to stimuli [None]
  - Hypotonia [None]
  - Headache [None]
  - Fall [None]

NARRATIVE: CASE EVENT DATE: 20150515
